FAERS Safety Report 10338953 (Version 1)
Quarter: 2014Q3

REPORT INFORMATION
  Report Type: Other
  Country: TW (occurrence: TW)
  Receive Date: 20140724
  Receipt Date: 20140724
  Transmission Date: 20150326
  Serious: Yes (Other)
  Sender: FDA-Public Use
  Company Number: TW-ENDO PHARMACEUTICALS INC-ZOLP20140030

PATIENT
  Age: 29 Year
  Sex: Male

DRUGS (4)
  1. DULOXETINE [Concomitant]
     Active Substance: DULOXETINE
     Indication: PRODUCT USED FOR UNKNOWN INDICATION
  2. ZOLPIDEM TARTRATE TABLETS 10MG [Suspect]
     Active Substance: ZOLPIDEM TARTRATE
     Indication: INSOMNIA
     Route: 048
  3. ZOLPIDEM TARTRATE TABLETS 10MG [Suspect]
     Active Substance: ZOLPIDEM TARTRATE
     Indication: DRUG ABUSE
     Route: 042
  4. ZOLPIDEM TARTRATE TABLETS 10MG [Suspect]
     Active Substance: ZOLPIDEM TARTRATE
     Route: 048

REACTIONS (10)
  - Reaction to drug excipients [Recovering/Resolving]
  - Incorrect route of drug administration [Recovered/Resolved]
  - Drug abuse [None]
  - Anxiety [None]
  - Wound [None]
  - Impaired work ability [None]
  - Wrong technique in drug usage process [Recovered/Resolved]
  - Impaired driving ability [None]
  - Treatment noncompliance [None]
  - Thrombophlebitis [None]

NARRATIVE: CASE EVENT DATE: 201305
